FAERS Safety Report 9974643 (Version 1)
Quarter: 2014Q1

REPORT INFORMATION
  Report Type: Report from Study
  Country: US (occurrence: US)
  Receive Date: 20140306
  Receipt Date: 20140306
  Transmission Date: 20141002
  Serious: No
  Sender: FDA-Public Use
  Company Number: US-ABBVIE-13P-163-1157353-00

PATIENT
  Age: 40 Year
  Sex: Female
  Weight: 75.82 kg

DRUGS (6)
  1. HUMIRA [Suspect]
     Indication: SCLERODERMA
     Dates: start: 201210, end: 201305
  2. NIFEDIPINE [Concomitant]
     Indication: HYPERTENSION
  3. NIFEDIPINE [Concomitant]
     Indication: RAYNAUD^S PHENOMENON
  4. PROZAC [Concomitant]
     Indication: DEPRESSION
  5. ADDERALL [Concomitant]
     Indication: ATTENTION DEFICIT/HYPERACTIVITY DISORDER
  6. PRILOSEC [Concomitant]
     Indication: GASTROOESOPHAGEAL REFLUX DISEASE

REACTIONS (4)
  - Drug dose omission [Not Recovered/Not Resolved]
  - Arthralgia [Not Recovered/Not Resolved]
  - Off label use [Unknown]
  - Scleroderma [Unknown]
